FAERS Safety Report 5091991-7 (Version None)
Quarter: 2006Q3

REPORT INFORMATION
  Report Type: 
  Country: None (occurrence: None)
  Receive Date: 20060825
  Receipt Date: 20060810
  Transmission Date: 20061208
  Serious: Yes (Hospitalization)
  Sender: FDA-Public Use
  Company Number: FI200608002004

PATIENT
  Age: 41 Year
  Sex: Male

DRUGS (5)
  1. HUMALOG [Suspect]
     Indication: DIABETES MELLITUS INSULIN-DEPENDENT
     Dosage: 5 U, INTRAVENOUS
  2. LANTUS [Concomitant]
  3. ALPHAGAN [Concomitant]
  4. BETOPTIC [Concomitant]
  5. RAMIPRIL [Concomitant]

REACTIONS (5)
  - CONVULSION [None]
  - DRUG INTERACTION [None]
  - FALL [None]
  - HYPOGLYCAEMIA [None]
  - LOSS OF CONSCIOUSNESS [None]
